FAERS Safety Report 20706702 (Version 6)
Quarter: 2023Q1

REPORT INFORMATION
  Report Type: Spontaneous
  Country: US (occurrence: US)
  Receive Date: 20220413
  Receipt Date: 20230119
  Transmission Date: 20230417
  Serious: Yes (Other)
  Sender: FDA-Public Use
  Company Number: US-PFIZER INC-202101176398

PATIENT
  Age: 64 Year
  Sex: Female
  Weight: 100 kg

DRUGS (6)
  1. IBRANCE [Suspect]
     Active Substance: PALBOCICLIB
     Indication: Breast cancer metastatic
     Dosage: 100 MG, CYCLIC (21 DAYS ON AND 7 DAYS OFF)
     Dates: start: 201902
  2. IBRANCE [Suspect]
     Active Substance: PALBOCICLIB
     Dosage: 75 MG, CYCLIC (21 DAYS ON 7 DAYS OFF)
     Route: 048
  3. DEXTROAMPHETAMINE [Concomitant]
     Active Substance: DEXTROAMPHETAMINE
     Indication: Neurological symptom
     Dosage: 5 MG
  4. DEXTROAMPHETAMINE [Concomitant]
     Active Substance: DEXTROAMPHETAMINE
     Indication: Fatigue
  5. LETROZOLE [Concomitant]
     Active Substance: LETROZOLE
     Dosage: UNK
  6. LATANOPROST [Concomitant]
     Active Substance: LATANOPROST
     Indication: Breast cancer metastatic
     Dosage: 2.5 MG, DAILY

REACTIONS (16)
  - Wrist fracture [Unknown]
  - Nausea [Recovering/Resolving]
  - Vomiting [Unknown]
  - Abdominal pain upper [Recovering/Resolving]
  - Gastrointestinal pain [Recovering/Resolving]
  - Dysphonia [Unknown]
  - Diarrhoea [Unknown]
  - Fall [Unknown]
  - Nasopharyngitis [Unknown]
  - Malaise [Unknown]
  - Vulvovaginal mycotic infection [Unknown]
  - Fungal skin infection [Unknown]
  - Blood calcium increased [Not Recovered/Not Resolved]
  - Hypoparathyroidism [Not Recovered/Not Resolved]
  - Condition aggravated [Not Recovered/Not Resolved]
  - Renal disorder [Unknown]

NARRATIVE: CASE EVENT DATE: 20220203
